FAERS Safety Report 24076752 (Version 2)
Quarter: 2025Q1

REPORT INFORMATION
  Report Type: Report from Study
  Country: TW (occurrence: TW)
  Receive Date: 20240711
  Receipt Date: 20250102
  Transmission Date: 20250408
  Serious: Yes (Hospitalization)
  Sender: JOHNSON AND JOHNSON
  Company Number: TW-JNJFOC-20240711276

PATIENT
  Age: 51 Year
  Sex: Male

DRUGS (2)
  1. DARZALEX [Suspect]
     Active Substance: DARATUMUMAB
     Indication: Plasma cell myeloma
     Route: 042
     Dates: start: 20240601
  2. DARZALEX [Suspect]
     Active Substance: DARATUMUMAB
     Route: 042

REACTIONS (4)
  - Overdose [Recovered/Resolved]
  - COVID-19 [Recovered/Resolved]
  - Coma [Recovered/Resolved]
  - Off label use [Unknown]

NARRATIVE: CASE EVENT DATE: 20240621
